FAERS Safety Report 10208872 (Version 1)
Quarter: 2014Q2

REPORT INFORMATION
  Report Type: Report from Study
  Country: BR (occurrence: BR)
  Receive Date: 20140530
  Receipt Date: 20140530
  Transmission Date: 20141212
  Serious: Yes (Other)
  Sender: FDA-Public Use
  Company Number: PHHY2014BR066574

PATIENT
  Sex: 0

DRUGS (14)
  1. DIOVAN [Suspect]
     Dosage: UNK UKN, UNK
  2. DIOVAN HCT [Suspect]
     Dosage: UNK 160/12.5 MG, UNK
  3. DIOVAN HCT [Suspect]
     Dosage: UNK 160/25 MG, UNK
  4. DIOVAN HCT [Suspect]
     Dosage: UNK 80/12.5 MG, UNK
  5. GALVUS [Suspect]
     Dosage: UNK 50 MG, UNK
  6. GALVUS [Suspect]
     Dosage: UNK 50 MG, UNK
     Dates: start: 20140526
  7. DIOVAN AMLO FIX [Suspect]
  8. DIOCOMB SI [Suspect]
     Dosage: UNK 160/20 MG, UNK
  9. DIOCOMB SI [Suspect]
     Dosage: UNK 80/20 MG, UNK
  10. LORAZEPAM [Concomitant]
     Indication: DEPRESSION
     Dosage: UNK 2 G UNK
  11. LORAZEPAM [Concomitant]
     Indication: SLEEP DISORDER
  12. CITALOPRAM [Concomitant]
     Indication: DEPRESSION
     Dosage: UNK 20 MG, UNK
  13. CITALOPRAM [Concomitant]
     Indication: SLEEP DISORDER
  14. ROSUVASTATIN CALCIUM [Concomitant]
     Indication: BLOOD CHOLESTEROL
     Dosage: UNK 10 MG, UNK

REACTIONS (8)
  - Diabetes mellitus [Recovering/Resolving]
  - Confusional state [Recovering/Resolving]
  - Malaise [Recovering/Resolving]
  - Blood cholesterol abnormal [Recovering/Resolving]
  - Headache [Recovering/Resolving]
  - Vomiting [Recovering/Resolving]
  - Depression [Recovering/Resolving]
  - Hypertension [Recovering/Resolving]
